FAERS Safety Report 14225624 (Version 1)
Quarter: 2017Q4

REPORT INFORMATION
  Report Type: Spontaneous
  Country: US (occurrence: US)
  Receive Date: 20171126
  Receipt Date: 20171126
  Transmission Date: 20180321
  Serious: No
  Sender: FDA-Public Use
  Company Number: None

PATIENT
  Age: 49 Year
  Sex: Female
  Weight: 58.5 kg

DRUGS (7)
  1. OMEPRAZOLE 40MG CAPSULE \ [Suspect]
     Active Substance: OMEPRAZOLE
     Indication: ULCER
     Dosage: ?          QUANTITY:1 CAPSULE(S);?
     Route: 048
     Dates: start: 20171001, end: 20171126
  2. FLONASE [Concomitant]
     Active Substance: FLUTICASONE PROPIONATE
  3. OMEPRAZOLE 40MG CAPSULE \ [Suspect]
     Active Substance: OMEPRAZOLE
     Indication: GASTROOESOPHAGEAL REFLUX DISEASE
     Dosage: ?          QUANTITY:1 CAPSULE(S);?
     Route: 048
     Dates: start: 20171001, end: 20171126
  4. FIORICET [Concomitant]
     Active Substance: ACETAMINOPHEN\BUTALBITAL\CAFFEINE
  5. TOPAMAX [Concomitant]
     Active Substance: TOPIRAMATE
  6. MULTI VITAMIN W/ IRON [Concomitant]
  7. OMEPRAZOLE 40MG CAPSULE \ [Suspect]
     Active Substance: OMEPRAZOLE
     Indication: BARRETT^S OESOPHAGUS
     Dosage: ?          QUANTITY:1 CAPSULE(S);?
     Route: 048
     Dates: start: 20171001, end: 20171126

REACTIONS (5)
  - Throat irritation [None]
  - Product substitution issue [None]
  - Oropharyngeal pain [None]
  - Drug ineffective [None]
  - Gastric pH decreased [None]

NARRATIVE: CASE EVENT DATE: 20171001
